FAERS Safety Report 7639777-0 (Version None)
Quarter: 2011Q3

REPORT INFORMATION
  Report Type: 
  Country: None (occurrence: None)
  Receive Date: 20110727
  Receipt Date: 20110718
  Transmission Date: 20111222
  Serious: Yes (Other)
  Sender: FDA-Public Use
  Company Number: PHHY2011AT61374

PATIENT
  Age: 56 Year
  Sex: Male

DRUGS (2)
  1. CAL-D-VITA [Concomitant]
     Dosage: UNK UKN, UNK
  2. ZOLEDRONOC ACID [Suspect]
     Dosage: 5 MG
     Route: 042
     Dates: start: 20110708

REACTIONS (5)
  - VOMITING [None]
  - CARDIOVASCULAR DISORDER [None]
  - SYNCOPE [None]
  - NAUSEA [None]
  - FATIGUE [None]
